FAERS Safety Report 7142689-2 (Version None)
Quarter: 2010Q4

REPORT INFORMATION
  Report Type: 
  Country: None (occurrence: None)
  Receive Date: 20101207
  Receipt Date: 20101201
  Transmission Date: 20110411
  Serious: Yes (Other)
  Sender: FDA-Public Use
  Company Number: SG-ABBOTT-10P-141-0685285-00

PATIENT
  Sex: Male

DRUGS (10)
  1. E.E.S. 400 [Suspect]
     Indication: ACNE
     Route: 048
     Dates: start: 20100930, end: 20101014
  2. TRICLOSAN WASH [Concomitant]
     Indication: PRODUCT USED FOR UNKNOWN INDICATION
     Route: 061
     Dates: start: 20100211
  3. TRICLOSAN WASH [Concomitant]
     Route: 061
     Dates: start: 20100802
  4. TRICLOSAN WASH [Concomitant]
     Route: 061
     Dates: start: 20100930
  5. CLINDAMYCIN [Concomitant]
     Indication: PRODUCT USED FOR UNKNOWN INDICATION
     Route: 061
     Dates: start: 20100802
  6. CLINDAMYCIN [Concomitant]
     Route: 061
     Dates: start: 20100930
  7. DOXYCYCLINE [Concomitant]
     Indication: PRODUCT USED FOR UNKNOWN INDICATION
     Dates: start: 20091201, end: 20100401
  8. DOXYCYCLINE [Concomitant]
     Dates: start: 20100802, end: 20100930
  9. BENZOYL PEROXIDE [Concomitant]
     Indication: PRODUCT USED FOR UNKNOWN INDICATION
     Route: 061
     Dates: start: 20100211
  10. ERYTHROMYCIN [Concomitant]
     Indication: PRODUCT USED FOR UNKNOWN INDICATION
     Route: 061
     Dates: start: 20100211

REACTIONS (1)
  - HEPATITIS [None]
